FAERS Safety Report 12441199 (Version 2)
Quarter: 2017Q4

REPORT INFORMATION
  Report Type: Spontaneous
  Country: US (occurrence: US)
  Receive Date: 20160607
  Receipt Date: 20171117
  Transmission Date: 20180320
  Serious: Yes (Other)
  Sender: FDA-Public Use
  Company Number: US-ABBVIE-16K-163-1640520-00

PATIENT
  Sex: Female

DRUGS (1)
  1. HUMIRA [Suspect]
     Active Substance: ADALIMUMAB
     Indication: HIDRADENITIS
     Route: 058

REACTIONS (6)
  - Hysterectomy [Unknown]
  - Hidradenitis [Unknown]
  - Vulvectomy [Unknown]
  - Itching scar [Unknown]
  - Scar pain [Unknown]
  - Menopause [Unknown]

NARRATIVE: CASE EVENT DATE: 2006
